FAERS Safety Report 6898580-X (Version None)
Quarter: 2010Q3

REPORT INFORMATION
  Report Type: 
  Country: None (occurrence: None)
  Receive Date: 20100802
  Receipt Date: 20071102
  Transmission Date: 20110219
  Serious: No
  Sender: FDA-Public Use
  Company Number: US-PFIZER INC-2007094737

PATIENT
  Sex: Male
  Weight: 106.6 kg

DRUGS (4)
  1. LYRICA [Suspect]
     Indication: FIBROMYALGIA
     Dates: start: 20071031, end: 20071102
  2. CALAN - SLOW RELEASE [Concomitant]
  3. SYNTHROID [Concomitant]
  4. CATAFLAM [Concomitant]

REACTIONS (3)
  - DIZZINESS [None]
  - FATIGUE [None]
  - FEELING ABNORMAL [None]
